FAERS Safety Report 22301121 (Version 8)
Quarter: 2023Q4

REPORT INFORMATION
  Report Type: Spontaneous
  Country: US (occurrence: US)
  Receive Date: 20230509
  Receipt Date: 20231222
  Transmission Date: 20240109
  Serious: Yes (Other)
  Sender: FDA-Public Use
  Company Number: US-SA-SAC20230505000858

PATIENT
  Age: 9 Year
  Sex: Female
  Weight: 36.28 kg

DRUGS (10)
  1. ELOCTATE [Suspect]
     Active Substance: EFMOROCTOCOG ALFA
     Indication: Factor VIII deficiency
     Dosage: 1500 U, QW (1350-1650) FOR BLEEDS
     Route: 042
     Dates: start: 201908
  2. ELOCTATE [Suspect]
     Active Substance: EFMOROCTOCOG ALFA
     Indication: Factor VIII deficiency
     Dosage: 1500 U, QW (1350-1650) FOR BLEEDS
     Route: 042
     Dates: start: 201908
  3. ELOCTATE [Suspect]
     Active Substance: EFMOROCTOCOG ALFA
     Dosage: 1500 U, PRN (1350-1650) FOR BLEEDS
     Route: 042
     Dates: start: 201908
  4. ELOCTATE [Suspect]
     Active Substance: EFMOROCTOCOG ALFA
     Dosage: 1500 U, PRN (1350-1650) FOR BLEEDS
     Route: 042
     Dates: start: 201908
  5. ELOCTATE [Suspect]
     Active Substance: EFMOROCTOCOG ALFA
     Dosage: 500 U, QW
     Route: 042
     Dates: start: 202211
  6. ELOCTATE [Suspect]
     Active Substance: EFMOROCTOCOG ALFA
     Dosage: 500 U, QW
     Route: 042
     Dates: start: 202211
  7. ELOCTATE [Suspect]
     Active Substance: EFMOROCTOCOG ALFA
     Dosage: 750 U, QW
     Route: 042
     Dates: start: 202211
  8. ELOCTATE [Suspect]
     Active Substance: EFMOROCTOCOG ALFA
     Dosage: 750 U, QW
     Route: 042
     Dates: start: 202211
  9. ELOCTATE [Suspect]
     Active Substance: EFMOROCTOCOG ALFA
     Dosage: 1500 U, QW
     Route: 042
     Dates: start: 202211
  10. ELOCTATE [Suspect]
     Active Substance: EFMOROCTOCOG ALFA
     Dosage: 1500 U, QW
     Route: 042
     Dates: start: 202211

REACTIONS (16)
  - Haematemesis [Recovered/Resolved]
  - Pain in extremity [Unknown]
  - Epistaxis [Recovered/Resolved]
  - Fall [Unknown]
  - Tooth loss [Unknown]
  - Joint injury [Unknown]
  - Traumatic haemorrhage [Not Recovered/Not Resolved]
  - Weight increased [Unknown]
  - Mouth haemorrhage [Recovered/Resolved]
  - Mouth haemorrhage [Recovered/Resolved]
  - Loose tooth [Recovered/Resolved]
  - Epistaxis [Recovered/Resolved]
  - Gingival bleeding [Recovered/Resolved]
  - Epistaxis [Unknown]
  - Mouth haemorrhage [Unknown]
  - Tooth loss [Unknown]

NARRATIVE: CASE EVENT DATE: 20230501
